FAERS Safety Report 8798477 (Version 3)
Quarter: 2012Q4

REPORT INFORMATION
  Report Type: 
  Country: US (occurrence: US)
  Receive Date: 20120920
  Receipt Date: 20121220
  Transmission Date: 20130627
  Serious: Yes (Death, Hospitalization)
  Sender: FDA-Public Use
  Company Number: US-CELGENEUS-163-21880-12091564

PATIENT
  Age: 73 Year
  Sex: Male

DRUGS (4)
  1. REVLIMID [Suspect]
     Indication: MDS
     Dosage: 10 Milligram
     Route: 048
     Dates: start: 20120427, end: 20121018
  2. MARINOL [Concomitant]
     Indication: APPETITE DISORDER
     Dosage: 5 Milligram
     Route: 048
  3. NAMENDA [Concomitant]
     Indication: ALZHEIMER^S DISEASE
     Dosage: 20 Milligram
     Route: 048
  4. PRILOSEC [Concomitant]
     Indication: DRUG USE FOR UNKNOWN INDICATION
     Dosage: 20 Milligram
     Route: 048

REACTIONS (2)
  - Myelodysplastic syndrome [Fatal]
  - Haemorrhage [Not Recovered/Not Resolved]
